FAERS Safety Report 18129823 (Version 1)
Quarter: 2020Q3

REPORT INFORMATION
  Report Type: Spontaneous
  Country: US (occurrence: US)
  Receive Date: 20200807
  Receipt Date: 20200807
  Transmission Date: 20201103
  Serious: Yes (Hospitalization)
  Sender: FDA-Public Use
  Company Number: None

PATIENT
  Age: 76 Year
  Sex: Female

DRUGS (36)
  1. AMLODIPINE [Concomitant]
     Active Substance: AMLODIPINE BESYLATE
  2. CLOPIDOGREL [Concomitant]
     Active Substance: CLOPIDOGREL BISULFATE
  3. FEXOFENADINE [Concomitant]
     Active Substance: FEXOFENADINE HYDROCHLORIDE
  4. ISOSORB MONO [Concomitant]
     Active Substance: ISOSORBIDE MONONITRATE
  5. NIFEDIAC CC [Concomitant]
     Active Substance: NIFEDIPINE
  6. CLOBETASOL [Concomitant]
     Active Substance: CLOBETASOL
  7. FOLICA ACID [Concomitant]
  8. KETOROLAC [Concomitant]
     Active Substance: KETOROLAC TROMETHAMINE
  9. LEXAPRO [Concomitant]
     Active Substance: ESCITALOPRAM OXALATE
  10. MIRTAZAPINE. [Concomitant]
     Active Substance: MIRTAZAPINE
  11. TORSEMIDE. [Concomitant]
     Active Substance: TORSEMIDE
  12. BACLOFEN. [Concomitant]
     Active Substance: BACLOFEN
  13. DOXYCYCL HYC [Concomitant]
  14. METOCLOPRAM [Concomitant]
     Active Substance: METOCLOPRAMIDE
  15. TRIAMCINOLON LOT [Concomitant]
  16. TRIAMCINOLON OIN [Concomitant]
  17. AMITIZA [Concomitant]
     Active Substance: LUBIPROSTONE
  18. METHOTREXATE. [Concomitant]
     Active Substance: METHOTREXATE
  19. OMEPRAZOLE. [Concomitant]
     Active Substance: OMEPRAZOLE
  20. TRAMADOL HCL [Concomitant]
     Active Substance: TRAMADOL HYDROCHLORIDE
  21. TRAZODONE [Concomitant]
     Active Substance: TRAZODONE HYDROCHLORIDE
  22. VITAMIN D [Concomitant]
     Active Substance: VITAMIN D NOS
  23. FLUOCIN ACET OIN [Concomitant]
  24. HYDROCO/APAP [Concomitant]
     Active Substance: ACETAMINOPHEN\HYDROCODONE
  25. NIFEDIPINE. [Concomitant]
     Active Substance: NIFEDIPINE
  26. VENLAFAXINE [Concomitant]
     Active Substance: VENLAFAXINE HYDROCHLORIDE
  27. WARFARIN [Concomitant]
     Active Substance: WARFARIN
  28. EZETIMBE [Concomitant]
     Active Substance: EZETIMIBE
  29. METOPROL SUC [Concomitant]
  30. XELJANZ [Suspect]
     Active Substance: TOFACITINIB CITRATE
     Indication: PRODUCT USED FOR UNKNOWN INDICATION
     Route: 048
  31. CEPHALEXIN. [Concomitant]
     Active Substance: CEPHALEXIN
  32. ROSUVASTATIN. [Concomitant]
     Active Substance: ROSUVASTATIN
  33. KRISTALOSE PAK [Concomitant]
  34. OXYCODONE AND ACETAMINOPHEN [Concomitant]
     Active Substance: ACETAMINOPHEN\OXYCODONE HYDROCHLORIDE
  35. PANTOPRAZOLE [Concomitant]
     Active Substance: PANTOPRAZOLE
  36. PROPO?N/APAP [Concomitant]

REACTIONS (1)
  - Condition aggravated [None]

NARRATIVE: CASE EVENT DATE: 20200801
